FAERS Safety Report 21000354 (Version 1)
Quarter: 2022Q2

REPORT INFORMATION
  Report Type: Report from Study
  Country: US (occurrence: US)
  Receive Date: 20220623
  Receipt Date: 20220623
  Transmission Date: 20220721
  Serious: Yes (Hospitalization)
  Sender: FDA-Public Use
  Company Number: US-JNJFOC-20220637356

PATIENT
  Age: 66 Year
  Sex: Male
  Weight: 96.8 kg

DRUGS (11)
  1. DARATUMUMAB [Suspect]
     Active Substance: DARATUMUMAB
     Indication: Plasma cell myeloma
     Dosage: MEDICATION KIT NUMBER: 103948
     Route: 058
     Dates: start: 20220428
  2. POMALIDOMIDE [Suspect]
     Active Substance: POMALIDOMIDE
     Indication: Plasma cell myeloma
     Dosage: DAILY FOR 21 DAYS
     Route: 048
     Dates: start: 20220602
  3. ZOVIRAX [Concomitant]
     Active Substance: ACYCLOVIR
     Route: 048
  4. NORVASC [Concomitant]
     Active Substance: AMLODIPINE BESYLATE
     Route: 048
  5. ELIQUIS [Concomitant]
     Active Substance: APIXABAN
     Route: 048
  6. LIPITOR [Concomitant]
     Active Substance: ATORVASTATIN CALCIUM
     Route: 048
  7. WELLBUTRIN XL [Concomitant]
     Active Substance: BUPROPION HYDROCHLORIDE
     Route: 048
  8. ZYRTEC [Concomitant]
     Active Substance: CETIRIZINE HYDROCHLORIDE
     Route: 048
  9. TEMOVATE [Concomitant]
     Active Substance: CLOBETASOL PROPIONATE
     Route: 061
  10. SYNTHROID [Concomitant]
     Active Substance: LEVOTHYROXINE SODIUM
     Route: 048
  11. TESSALON [Concomitant]
     Active Substance: BENZONATATE
     Indication: Cough
     Route: 048

REACTIONS (1)
  - Febrile neutropenia [Recovering/Resolving]

NARRATIVE: CASE EVENT DATE: 20220614
